FAERS Safety Report 7123702-5 (Version None)
Quarter: 2010Q4

REPORT INFORMATION
  Report Type: 
  Country: None (occurrence: None)
  Receive Date: 20101125
  Receipt Date: 20101112
  Transmission Date: 20110411
  Serious: Yes (Other)
  Sender: FDA-Public Use
  Company Number: PHHY2010CA72453

PATIENT
  Sex: Female

DRUGS (1)
  1. ACLASTA [Suspect]
     Indication: OSTEOPOROSIS
     Dosage: 5 MG
     Route: 042
     Dates: start: 20101025

REACTIONS (10)
  - CHILLS [None]
  - EYE IRRITATION [None]
  - HEADACHE [None]
  - INFLUENZA LIKE ILLNESS [None]
  - KERATITIS [None]
  - NAUSEA [None]
  - OCULAR HYPERAEMIA [None]
  - PAIN [None]
  - PAIN IN JAW [None]
  - PYREXIA [None]
